FAERS Safety Report 8186471-6 (Version None)
Quarter: 2012Q1

REPORT INFORMATION
  Report Type: 
  Country: None (occurrence: None)
  Receive Date: 20120305
  Receipt Date: 20120305
  Transmission Date: 20120608
  Serious: Yes (Other)
  Sender: FDA-Public Use
  Company Number: None

PATIENT
  Age: 38 Year
  Sex: Female
  Weight: 65.318 kg

DRUGS (1)
  1. ALLUMERA PHOTOCURE [Suspect]
     Indication: THERAPEUTIC PROCEDURE
     Dosage: TREATED MY FACE 1
     Dates: start: 20111228, end: 20111228

REACTIONS (6)
  - APPLICATION SITE EXFOLIATION [None]
  - APPLICATION SITE DISCOLOURATION [None]
  - ANGER [None]
  - APPLICATION SITE VESICLES [None]
  - APPLICATION SITE BURN [None]
  - APPLICATION SITE PAIN [None]
